FAERS Safety Report 4693455-9 (Version None)
Quarter: 2005Q2

REPORT INFORMATION
  Report Type: 
  Country: None (occurrence: None)
  Receive Date: 20050617
  Receipt Date: 20050607
  Transmission Date: 20051028
  Serious: Yes (Other)
  Sender: FDA-Public Use
  Company Number: PHEH2005US06459

PATIENT
  Age: 52 Year
  Sex: Female

DRUGS (2)
  1. ZOMETA [Suspect]
     Indication: METASTASES TO BONE
     Dosage: 4 MG EVERY MONTH
     Dates: start: 20021101, end: 20031201
  2. AREDIA [Suspect]
     Indication: METASTASES TO BONE
     Dosage: 90 MG EVERY MONTH
     Dates: start: 20040102, end: 20050319

REACTIONS (1)
  - ASEPTIC NECROSIS BONE [None]
